FAERS Safety Report 4766214-6 (Version None)
Quarter: 2005Q3

REPORT INFORMATION
  Report Type: 
  Country: None (occurrence: None)
  Receive Date: 20050909
  Receipt Date: 20050825
  Transmission Date: 20060218
  Serious: Yes (Other)
  Sender: FDA-Public Use
  Company Number: B0302012A

PATIENT
  Sex: Male

DRUGS (1)
  1. PAXIL [Suspect]
     Dosage: TRANSPLACENTARY
     Route: 064

REACTIONS (13)
  - BLEEDING TIME PROLONGED [None]
  - BLOOD PH DECREASED [None]
  - CLONUS [None]
  - CONVULSION NEONATAL [None]
  - CSF PROTEIN INCREASED [None]
  - DRUG EXPOSURE DURING PREGNANCY [None]
  - EYE MOVEMENT DISORDER [None]
  - HIGH-PITCHED CRYING [None]
  - HYPERTONIA NEONATAL [None]
  - LUMBAR PUNCTURE ABNORMAL [None]
  - NEONATAL DISORDER [None]
  - RED BLOOD CELLS CSF POSITIVE [None]
  - SUBARACHNOID HAEMORRHAGE [None]
